FAERS Safety Report 9853345 (Version 1)
Quarter: 2014Q1

REPORT INFORMATION
  Report Type: Spontaneous
  Country: CA (occurrence: CA)
  Receive Date: 20140129
  Receipt Date: 20140129
  Transmission Date: 20141002
  Serious: Yes (Other)
  Sender: FDA-Public Use
  Company Number: CHPA2014CA001363

PATIENT
  Age: 36 Year
  Sex: Female

DRUGS (1)
  1. MAALOX EXTRA STRENGTH PREMIUM [Suspect]
     Indication: DYSPEPSIA
     Dosage: 2 DF, PRN
     Route: 048
     Dates: start: 2000, end: 2013

REACTIONS (2)
  - Abortion spontaneous [Recovered/Resolved]
  - Exposure during pregnancy [Recovered/Resolved]
